FAERS Safety Report 12439724 (Version 2)
Quarter: 2016Q2

REPORT INFORMATION
  Report Type: Report from Study
  Country: US (occurrence: US)
  Receive Date: 20160606
  Receipt Date: 20160610
  Transmission Date: 20160815
  Serious: Yes (Death)
  Sender: FDA-Public Use
  Company Number: US-PFIZER INC-2016280988

PATIENT

DRUGS (1)
  1. PHENYTOIN SODIUM. [Suspect]
     Active Substance: PHENYTOIN SODIUM
     Indication: ARRHYTHMIA
     Dosage: 5 MG/KG, NOT EXCEEDING 350 MG
     Route: 042

REACTIONS (4)
  - Product use issue [Fatal]
  - Cardiac arrest [Fatal]
  - Ventricular asystole [Fatal]
  - Incorrect drug administration rate [Fatal]
